FAERS Safety Report 4269096-4 (Version None)
Quarter: 2004Q1

REPORT INFORMATION
  Report Type: 
  Country: None (occurrence: None)
  Receive Date: 20040112
  Receipt Date: 20040112
  Transmission Date: 20041129
  Serious: Yes (Death)
  Sender: FDA-Public Use
  Company Number: None

PATIENT
  Age: 61 Year
  Sex: Male

DRUGS (2)
  1. WARFARIN SODIUM [Suspect]
  2. GATIFLOXACIN [Suspect]
     Indication: INFECTION

REACTIONS (1)
  - HAEMORRHAGE INTRACRANIAL [None]
